FAERS Safety Report 6255510-1 (Version None)
Quarter: 2009Q2

REPORT INFORMATION
  Report Type: 
  Country: None (occurrence: None)
  Receive Date: 20090630
  Receipt Date: 20060405
  Transmission Date: 20091009
  Serious: Yes (Death, Hospitalization, Other)
  Sender: FDA-Public Use
  Company Number: A-CH2006-12475

PATIENT
  Age: 65 Year
  Sex: Male
  Weight: 70 kg

DRUGS (10)
  1. TRACLEER [Suspect]
     Indication: PULMONARY HYPERTENSION
     Dosage: 62.5 MG, BID, ORAL; 125 MG, BID, ORAL
     Route: 048
     Dates: start: 20040618, end: 20040711
  2. TRACLEER [Suspect]
     Indication: PULMONARY HYPERTENSION
     Dosage: 62.5 MG, BID, ORAL; 125 MG, BID, ORAL
     Route: 048
     Dates: start: 20040712, end: 20060327
  3. SPIRIVA [Concomitant]
  4. FOSAMAX [Concomitant]
  5. CALCIUM CARBONATE (CALCIUM CARBONATE) [Concomitant]
  6. ASPIRIN [Concomitant]
  7. MEDROL [Concomitant]
  8. COZAAR [Concomitant]
  9. ALLOPURINOL [Concomitant]
  10. LASIX [Concomitant]

REACTIONS (7)
  - CHRONIC OBSTRUCTIVE PULMONARY DISEASE [None]
  - DISEASE PROGRESSION [None]
  - HYPERTENSION [None]
  - PULMONARY ARTERIAL HYPERTENSION [None]
  - SCLERODERMA [None]
  - SMALL CELL LUNG CANCER STAGE UNSPECIFIED [None]
  - SUDDEN DEATH [None]
